FAERS Safety Report 8298162-1 (Version None)
Quarter: 2012Q2

REPORT INFORMATION
  Report Type: 
  Country: None (occurrence: None)
  Receive Date: 20120419
  Receipt Date: 20120113
  Transmission Date: 20120825
  Serious: No
  Sender: FDA-Public Use
  Company Number: US-BRISTOL-MYERS SQUIBB COMPANY-16208498

PATIENT

DRUGS (1)
  1. YERVOY [Suspect]

REACTIONS (2)
  - DIARRHOEA [None]
  - CHILLS [None]
